FAERS Safety Report 22639425 (Version 2)
Quarter: 2025Q2

REPORT INFORMATION
  Report Type: Spontaneous
  Country: ES (occurrence: ES)
  Receive Date: 20230626
  Receipt Date: 20250522
  Transmission Date: 20250717
  Serious: Yes (Other)
  Sender: AUROBINDO
  Company Number: ES-STADA-278820

PATIENT
  Age: 56 Year
  Sex: Female

DRUGS (15)
  1. FLUCONAZOLE [Suspect]
     Active Substance: FLUCONAZOLE
     Indication: Benign familial pemphigus
     Route: 065
  2. ACITRETIN [Suspect]
     Active Substance: ACITRETIN
     Indication: Benign familial pemphigus
     Route: 065
  3. MINOCYCLINE [Suspect]
     Active Substance: MINOCYCLINE HYDROCHLORIDE
     Indication: Benign familial pemphigus
     Route: 065
  4. APREMILAST [Suspect]
     Active Substance: APREMILAST
     Indication: Benign familial pemphigus
     Route: 065
  5. CYCLOSPORINE [Suspect]
     Active Substance: CYCLOSPORINE
     Indication: Benign familial pemphigus
     Route: 065
  6. DAPSONE [Suspect]
     Active Substance: DAPSONE
     Indication: Benign familial pemphigus
     Route: 065
  7. HYDROXYCHLOROQUINE [Suspect]
     Active Substance: HYDROXYCHLOROQUINE
     Indication: Benign familial pemphigus
     Route: 065
  8. NALTREXONE [Suspect]
     Active Substance: NALTREXONE
     Indication: Benign familial pemphigus
     Route: 065
  9. PREDNISONE [Suspect]
     Active Substance: PREDNISONE
     Indication: Benign familial pemphigus
     Route: 065
  10. OXYBUTYNIN [Suspect]
     Active Substance: OXYBUTYNIN
     Indication: Benign familial pemphigus
     Route: 065
  11. METHOTREXATE [Suspect]
     Active Substance: METHOTREXATE
     Indication: Benign familial pemphigus
     Route: 065
  12. TACROLIMUS [Suspect]
     Active Substance: TACROLIMUS
     Indication: Benign familial pemphigus
     Route: 065
  13. DUPILUMAB [Concomitant]
     Active Substance: DUPILUMAB
     Indication: Benign familial pemphigus
     Route: 058
  14. DUPILUMAB [Concomitant]
     Active Substance: DUPILUMAB
     Route: 058
  15. CLOBETASOL PROPIONATE [Concomitant]
     Active Substance: CLOBETASOL PROPIONATE
     Indication: Benign familial pemphigus
     Route: 065

REACTIONS (1)
  - Drug ineffective [Unknown]
